FAERS Safety Report 20662457 (Version 1)
Quarter: 2022Q2

REPORT INFORMATION
  Report Type: Spontaneous
  Country: US (occurrence: US)
  Receive Date: 20220401
  Receipt Date: 20220401
  Transmission Date: 20220721
  Serious: Yes (Death)
  Sender: FDA-Public Use
  Company Number: US-STRIDES ARCOLAB LIMITED-2022SP003276

PATIENT
  Age: 42 Year
  Sex: Male

DRUGS (4)
  1. PREDNISOLONE [Suspect]
     Active Substance: PREDNISOLONE
     Indication: Anaplastic large-cell lymphoma
     Dosage: UNK CYCLICAL, 6 CYCLES OF CHOP THERAPY
     Route: 065
  2. DOXORUBICIN [Suspect]
     Active Substance: DOXORUBICIN
     Indication: Anaplastic large-cell lymphoma
     Dosage: UNK CYCLICAL, 6 CYCLES OF CHOP THERAPY
     Route: 065
  3. CYCLOPHOSPHAMIDE [Suspect]
     Active Substance: CYCLOPHOSPHAMIDE
     Indication: Anaplastic large-cell lymphoma
     Dosage: UNK CYCLICAL, 6 CYCLES OF CHOP THERAPY
     Route: 065
  4. VINCRISTINE [Suspect]
     Active Substance: VINCRISTINE
     Indication: Anaplastic large-cell lymphoma
     Dosage: UNK CYCLICAL, 6 CYCLES OF CHOP THERAPY
     Route: 065

REACTIONS (2)
  - Respiratory failure [Fatal]
  - Off label use [Unknown]
